FAERS Safety Report 23021150 (Version 1)
Quarter: 2023Q4

REPORT INFORMATION
  Report Type: Spontaneous
  Country: US (occurrence: None)
  Receive Date: 20231003
  Receipt Date: 20231003
  Transmission Date: 20240109
  Serious: Yes (Other)
  Sender: FDA-Public Use
  Company Number: None

PATIENT
  Age: 75 Year
  Sex: Female

DRUGS (8)
  1. PIQRAY [Suspect]
     Active Substance: ALPELISIB
     Indication: Breast cancer
     Dosage: FREQUENCY : DAILY;?
     Route: 048
     Dates: start: 20220822, end: 20230922
  2. FASLODEX [Concomitant]
     Active Substance: FULVESTRANT
  3. METOPROLOL SUCCINATE [Concomitant]
     Active Substance: METOPROLOL SUCCINATE
  4. XGEVA [Concomitant]
     Active Substance: DENOSUMAB
  5. ELIQUIS [Concomitant]
     Active Substance: APIXABAN
  6. BISOPROLOL FUMARATE [Concomitant]
     Active Substance: BISOPROLOL FUMARATE
  7. COLAZAL [Concomitant]
     Active Substance: BALSALAZIDE DISODIUM
  8. MULTI-DAY [Concomitant]

REACTIONS (2)
  - Drug ineffective [None]
  - Metastasis [None]

NARRATIVE: CASE EVENT DATE: 20230922
